FAERS Safety Report 25829713 (Version 1)
Quarter: 2025Q3

REPORT INFORMATION
  Report Type: Report from Study
  Country: US (occurrence: US)
  Receive Date: 20250922
  Receipt Date: 20250922
  Transmission Date: 20251020
  Serious: Yes (Life-Threatening, Other)
  Sender: ALEXION PHARMACEUTICALS
  Company Number: US-AstraZeneca-CH-00953859A

PATIENT
  Sex: Female

DRUGS (2)
  1. BENRALIZUMAB [Suspect]
     Active Substance: BENRALIZUMAB
     Route: 065
  2. BENRALIZUMAB [Suspect]
     Active Substance: BENRALIZUMAB

REACTIONS (9)
  - Pulmonary function test decreased [Unknown]
  - Depression [Unknown]
  - Sleep disorder [Unknown]
  - Pulmonary hypertension [Unknown]
  - Near death experience [Unknown]
  - Decreased appetite [Unknown]
  - Product dose omission in error [Unknown]
  - Product use issue [Unknown]
  - Illness [Unknown]
